FAERS Safety Report 6804493-1 (Version None)
Quarter: 2010Q2

REPORT INFORMATION
  Report Type: 
  Country: None (occurrence: None)
  Receive Date: 20100628
  Receipt Date: 20070404
  Transmission Date: 20101027
  Serious: No
  Sender: FDA-Public Use
  Company Number: US-PFIZER INC-2007027549

PATIENT
  Sex: Female
  Weight: 77.11 kg

DRUGS (2)
  1. GEODON [Suspect]
     Indication: BIPOLAR DISORDER
     Dates: start: 20040101
  2. CYMBALTA [Concomitant]

REACTIONS (1)
  - FATIGUE [None]
